FAERS Safety Report 10255747 (Version 1)
Quarter: 2014Q2

REPORT INFORMATION
  Report Type: Report from Study
  Country: DE (occurrence: DE)
  Receive Date: 20140624
  Receipt Date: 20140624
  Transmission Date: 20141212
  Serious: Yes (Other)
  Sender: FDA-Public Use
  Company Number: DE-BAYER-2014-090140

PATIENT
  Age: 35 Year
  Sex: Female

DRUGS (3)
  1. BETAFERON [Suspect]
     Indication: MULTIPLE SCLEROSIS
     Dosage: 250 ?G, QOD
     Route: 058
     Dates: start: 20100113
  2. OMEPRAZOL [Concomitant]
     Dosage: UNK
  3. IBUPROFEN [Concomitant]
     Dosage: 1 DF (800 OR 900G), TID

REACTIONS (1)
  - Abdominal abscess [Recovering/Resolving]
